FAERS Safety Report 16864542 (Version 5)
Quarter: 2021Q2

REPORT INFORMATION
  Report Type: Spontaneous
  Country: HU (occurrence: HU)
  Receive Date: 20190928
  Receipt Date: 20210430
  Transmission Date: 20210716
  Serious: Yes (Other)
  Sender: FDA-Public Use
  Company Number: PHHY2019HU223843

PATIENT
  Sex: Male

DRUGS (4)
  1. ALLOPURINOL. [Suspect]
     Active Substance: ALLOPURINOL
     Indication: CHRONIC MYELOID LEUKAEMIA
     Dosage: UNK
     Route: 065
  2. GLIVEC [Suspect]
     Active Substance: IMATINIB MESYLATE
     Indication: CHRONIC MYELOID LEUKAEMIA
     Dosage: 400 MG, QD (1X/DAILY)
     Route: 065
     Dates: start: 200804, end: 201009
  3. TASIGNA [Suspect]
     Active Substance: NILOTINIB
     Indication: CHRONIC MYELOID LEUKAEMIA
     Dosage: 400 MG, BID (2X/DAILY)
     Route: 065
     Dates: start: 201011
  4. TASIGNA [Suspect]
     Active Substance: NILOTINIB
     Dosage: 300 MG, BID (2 X 300 MG)
     Route: 065
     Dates: start: 201810

REACTIONS (19)
  - Eosinophil count decreased [Unknown]
  - Fatigue [Unknown]
  - Lymphocyte count abnormal [Unknown]
  - Basophil count increased [Unknown]
  - Malaise [Unknown]
  - Cytogenetic analysis abnormal [Recovering/Resolving]
  - Product use in unapproved indication [Unknown]
  - Drug ineffective [Unknown]
  - Leukocytosis [Not Recovered/Not Resolved]
  - Neutrophil count increased [Unknown]
  - Lymphocyte count decreased [Unknown]
  - Hyperhidrosis [Unknown]
  - Monocyte count increased [Unknown]
  - Haemoglobin decreased [Unknown]
  - Drug resistance [Unknown]
  - Splenomegaly [Unknown]
  - Leukostasis syndrome [Unknown]
  - Haematocrit decreased [Unknown]
  - Red cell distribution width increased [Unknown]

NARRATIVE: CASE EVENT DATE: 200809
